FAERS Safety Report 17799448 (Version 1)
Quarter: 2020Q2

REPORT INFORMATION
  Report Type: Spontaneous
  Country: CH (occurrence: CH)
  Receive Date: 20200518
  Receipt Date: 20200518
  Transmission Date: 20200714
  Serious: Yes (Other)
  Sender: FDA-Public Use
  Company Number: CH-ASTRAZENECA-2020SE64943

PATIENT
  Age: 27 Year
  Sex: Female

DRUGS (5)
  1. ROACCUTANE [Concomitant]
     Active Substance: ISOTRETINOIN
     Dosage: UNKNOWN
     Route: 048
     Dates: end: 201902
  2. ITINEROL B6 [Concomitant]
     Active Substance: CAFFEINE\MECLIZINE MONOHYDROCHLORIDE\PYRIDOXINE HYDROCHLORIDE
     Dosage: UNKNOWN DOSE ,EVERY DAY
     Route: 048
  3. ZOMIG [Suspect]
     Active Substance: ZOLMITRIPTAN
     Indication: PRODUCT USED FOR UNKNOWN INDICATION
     Dosage: UNKNOWN DOSE AS NEEDED
     Route: 065
     Dates: end: 20190618
  4. IMIGRAN [SUMATRIPTAN] [Suspect]
     Active Substance: SUMATRIPTAN
     Indication: MIGRAINE
     Dosage: UNKNOWN DOSE, AS NEEDED
     Route: 065
     Dates: end: 20190618
  5. TORA-DOL [Suspect]
     Active Substance: KETOROLAC TROMETHAMINE
     Indication: MIGRAINE
     Dosage: UNKNOWN DOSE AS NEEDED
     Route: 065
     Dates: end: 20190618

REACTIONS (2)
  - Abortion spontaneous [Recovered/Resolved]
  - Maternal exposure during pregnancy [Recovered/Resolved]

NARRATIVE: CASE EVENT DATE: 201905
